FAERS Safety Report 9132921 (Version 1)
Quarter: 2013Q1

REPORT INFORMATION
  Report Type: Report from Study
  Country: US (occurrence: US)
  Receive Date: 20130301
  Receipt Date: 20130301
  Transmission Date: 20140127
  Serious: Yes (Hospitalization)
  Sender: FDA-Public Use
  Company Number: US-ABBOTT-13P-163-1052515-00

PATIENT
  Sex: Female
  Weight: 95.34 kg

DRUGS (11)
  1. HUMIRA [Suspect]
     Indication: COLITIS ULCERATIVE
     Dates: start: 2008
  2. HUMIRA [Suspect]
     Dates: end: 201102
  3. PENTASA [Concomitant]
     Indication: PRODUCT USED FOR UNKNOWN INDICATION
  4. ZOFRAN [Concomitant]
     Indication: PRODUCT USED FOR UNKNOWN INDICATION
  5. SERAQUEL [Concomitant]
     Indication: PRODUCT USED FOR UNKNOWN INDICATION
  6. ATIVAN [Concomitant]
     Indication: PRODUCT USED FOR UNKNOWN INDICATION
  7. DEPAKOTE [Concomitant]
     Indication: AFFECTIVE DISORDER
  8. QSYMIA [Concomitant]
     Indication: WEIGHT DECREASED
  9. CYMBALTA [Concomitant]
     Indication: PRODUCT USED FOR UNKNOWN INDICATION
  10. INDAPAMIDE [Concomitant]
     Indication: DIURETIC THERAPY
  11. FLORINEF [Concomitant]
     Indication: PRODUCT USED FOR UNKNOWN INDICATION

REACTIONS (3)
  - Adrenal insufficiency [Not Recovered/Not Resolved]
  - Colectomy [Recovered/Resolved]
  - Drug ineffective [Unknown]
